FAERS Safety Report 5100949-0 (Version None)
Quarter: 2006Q3

REPORT INFORMATION
  Report Type: 
  Country: None (occurrence: None)
  Receive Date: 20060911
  Receipt Date: 20060901
  Transmission Date: 20061208
  Serious: Yes (Hospitalization)
  Sender: FDA-Public Use
  Company Number: PHEH2006US11293

PATIENT
  Age: 83 Year
  Sex: Male

DRUGS (3)
  1. STALEVO 100 [Suspect]
     Dosage: 150 MG 2 TABS 4 X DAILY
     Route: 048
     Dates: end: 20060801
  2. STALEVO 100 [Suspect]
     Dosage: 150 MG 2 TABS 2 X DAILY
     Dates: start: 20060801, end: 20060801
  3. STALEVO 100 [Suspect]
     Dosage: 150 MG, QID
     Route: 048
     Dates: start: 20060801

REACTIONS (3)
  - AGGRESSION [None]
  - AGITATION [None]
  - BACK PAIN [None]
